FAERS Safety Report 14561899 (Version 1)
Quarter: 2018Q1

REPORT INFORMATION
  Report Type: Spontaneous
  Country: US (occurrence: US)
  Receive Date: 20180221
  Receipt Date: 20180221
  Transmission Date: 20180509
  Serious: Yes (Life-Threatening, Hospitalization)
  Sender: FDA-Public Use
  Company Number: None

PATIENT
  Age: 86 Year
  Sex: Female
  Weight: 90 kg

DRUGS (14)
  1. MEMANTINE. [Concomitant]
     Active Substance: MEMANTINE
  2. METFORMIN [Concomitant]
     Active Substance: METFORMIN HYDROCHLORIDE
  3. VITAMIN D3 [Concomitant]
     Active Substance: CHOLECALCIFEROL
  4. SCOPOLAMINE PATCH [Suspect]
     Active Substance: SCOPOLAMINE
  5. SYSTANE (HYPROMELLOSE 2910 (4000 MPA.S)) [Concomitant]
     Active Substance: HYPROMELLOSE 2910 (4000 MPA.S)
  6. OMEPRAZOLE. [Concomitant]
     Active Substance: OMEPRAZOLE
  7. TOPCAL PAD FOR NECK [Concomitant]
  8. SUPPLEMENTS [Concomitant]
     Active Substance: UNSPECIFIED INGREDIENT
  9. METOLZSONE [Concomitant]
  10. TROLAMINE [Concomitant]
     Active Substance: TROLAMINE
  11. LATANAPROST [Concomitant]
     Active Substance: LATANOPROST
  12. PRREDNISONE [Concomitant]
  13. POTASSIUM CHLORIDE. [Concomitant]
     Active Substance: POTASSIUM CHLORIDE
  14. MULTIVITAMIN [Concomitant]
     Active Substance: VITAMINS

REACTIONS (5)
  - Fear [None]
  - Dehydration [None]
  - Eye pruritus [None]
  - Hypophagia [None]
  - Cough [None]

NARRATIVE: CASE EVENT DATE: 20180215
